FAERS Safety Report 11908764 (Version 1)
Quarter: 2016Q1

REPORT INFORMATION
  Report Type: Report from Study
  Country: US (occurrence: US)
  Receive Date: 20160111
  Receipt Date: 20160111
  Transmission Date: 20160526
  Serious: No
  Sender: FDA-Public Use
  Company Number: US-009507513-2007SP000038

PATIENT
  Age: 39 Year
  Sex: Female

DRUGS (5)
  1. MK-8908 [Suspect]
     Active Substance: INVESTIGATIONAL PRODUCT
     Indication: HEPATITIS C
     Route: 048
     Dates: start: 2003, end: 200305
  2. MK-8908 [Suspect]
     Active Substance: INVESTIGATIONAL PRODUCT
     Route: 048
     Dates: start: 20060917
  3. PEGINTERFERON ALFA-2B [Suspect]
     Active Substance: PEGINTERFERON ALFA-2B
     Dates: start: 20060917
  4. PEGINTERFERON ALFA-2B [Suspect]
     Active Substance: PEGINTERFERON ALFA-2B
  5. PEGINTERFERON ALFA-2B [Suspect]
     Active Substance: PEGINTERFERON ALFA-2B
     Indication: HEPATITIS C
     Dates: start: 2003, end: 200305

REACTIONS (2)
  - No adverse event [Recovered/Resolved]
  - Pregnancy [Recovered/Resolved]

NARRATIVE: CASE EVENT DATE: 200307
